FAERS Safety Report 21351464 (Version 3)
Quarter: 2022Q4

REPORT INFORMATION
  Report Type: Spontaneous
  Country: CN (occurrence: CN)
  Receive Date: 20220919
  Receipt Date: 20221004
  Transmission Date: 20230113
  Serious: Yes (Death, Other)
  Sender: FDA-Public Use
  Company Number: CN-SA-SAC20220916000007

PATIENT
  Age: 17 Year
  Sex: Male

DRUGS (1)
  1. CEREZYME [Suspect]
     Active Substance: IMIGLUCERASE
     Indication: Gaucher^s disease type I
     Dosage: 60 UNITS; 12 VIALS/MONTH
     Route: 041
     Dates: start: 200609, end: 202208

REACTIONS (2)
  - Epilepsy [Fatal]
  - Seizure [Fatal]

NARRATIVE: CASE EVENT DATE: 20220828
